FAERS Safety Report 19423701 (Version 1)
Quarter: 2021Q2

REPORT INFORMATION
  Report Type: Spontaneous
  Country: US (occurrence: US)
  Receive Date: 20210616
  Receipt Date: 20210616
  Transmission Date: 20210717
  Serious: No
  Sender: FDA-Public Use
  Company Number: US-PFIZER INC-2021568986

PATIENT
  Age: 13 Year
  Sex: Male

DRUGS (2)
  1. GENOTROPIN [Suspect]
     Active Substance: SOMATROPIN
     Dosage: 1.6 MG DAILY (7 DAYS/WK)
  2. GENOTROPIN [Suspect]
     Active Substance: SOMATROPIN
     Dosage: 2.4 MG, DAILY
     Dates: end: 20210517

REACTIONS (3)
  - Drug dose omission by device [Unknown]
  - Device use issue [Unknown]
  - Device issue [Unknown]

NARRATIVE: CASE EVENT DATE: 20210517
